FAERS Safety Report 20858259 (Version 1)
Quarter: 2022Q2

REPORT INFORMATION
  Report Type: Spontaneous
  Country: CH (occurrence: CH)
  Receive Date: 20220521
  Receipt Date: 20220521
  Transmission Date: 20220721
  Serious: Yes (Other)
  Sender: FDA-Public Use
  Company Number: None

PATIENT
  Age: 86 Year
  Sex: Female
  Weight: 52 kg

DRUGS (11)
  1. PROLIA [Suspect]
     Active Substance: DENOSUMAB
     Indication: Osteoporosis
     Dosage: 60 MILLIGRAM
     Route: 058
     Dates: start: 20150602
  2. PANTOZOL [Suspect]
     Active Substance: PANTOPRAZOLE SODIUM
     Indication: Product used for unknown indication
     Dosage: 40 MILLIGRAM, QD
     Route: 048
  3. METHOTREXATE SODIUM [Suspect]
     Active Substance: METHOTREXATE SODIUM
     Indication: Rheumatoid arthritis
     Dosage: 7.5 MILLIGRAM, QWK
     Route: 058
  4. AMLODIPINE [Concomitant]
     Active Substance: AMLODIPINE BESYLATE
     Dosage: 2.5 MILLIGRAM, QD
  5. VIMPAT [Concomitant]
     Active Substance: LACOSAMIDE
     Dosage: 50 MILLIGRAM, 2/D
  6. Calcimagon D3 Forte [Concomitant]
     Dosage: UNK UNK, QD
  7. VITAMIN D [Concomitant]
     Active Substance: VITAMIN D NOS
     Dosage: 1200 IU, QD
  8. ACETAMINOPHEN [Concomitant]
     Active Substance: ACETAMINOPHEN
     Dosage: 500 MILLIGRAM, 4XQD
  9. BROMAZEPAM [Concomitant]
     Active Substance: BROMAZEPAM
     Dosage: 0.75 MILLIGRAM, QD
  10. MELATONIN [Concomitant]
     Active Substance: MELATONIN
     Dosage: 3 MILLIGRAM, QD
  11. ENOXAPARIN SODIUM [Concomitant]
     Active Substance: ENOXAPARIN SODIUM
     Dosage: 40 MILLIGRAM, QD

REACTIONS (1)
  - Lumbar vertebral fracture [Recovering/Resolving]

NARRATIVE: CASE EVENT DATE: 20220208
